FAERS Safety Report 20296252 (Version 6)
Quarter: 2022Q2

REPORT INFORMATION
  Report Type: Report from Study
  Country: KR (occurrence: KR)
  Receive Date: 20220105
  Receipt Date: 20220623
  Transmission Date: 20220720
  Serious: Yes (Death, Hospitalization, Other)
  Sender: FDA-Public Use
  Company Number: KR-ABBVIE-21K-090-4217039-00

PATIENT
  Age: 81 Year
  Sex: Female
  Weight: 54.6 kg

DRUGS (31)
  1. VENCLEXTA [Suspect]
     Active Substance: VENETOCLAX
     Indication: Acute myeloid leukaemia
     Route: 048
     Dates: start: 20211217, end: 20211217
  2. VENCLEXTA [Suspect]
     Active Substance: VENETOCLAX
     Route: 048
     Dates: start: 20211218, end: 20211218
  3. VENCLEXTA [Suspect]
     Active Substance: VENETOCLAX
     Route: 048
     Dates: start: 20211219, end: 20211219
  4. VENCLEXTA [Suspect]
     Active Substance: VENETOCLAX
     Route: 048
     Dates: start: 20211220
  5. VIDAZA [Concomitant]
     Active Substance: AZACITIDINE
     Indication: Acute myeloid leukaemia
     Dosage: 100MG
     Route: 058
     Dates: start: 20211217, end: 20211223
  6. ALLOPURINOL [Concomitant]
     Active Substance: ALLOPURINOL
     Indication: Tumour lysis syndrome
     Route: 048
     Dates: start: 20211217
  7. ZOYLEX [Concomitant]
     Indication: Antiviral treatment
     Dosage: 250MG/10ML
     Route: 042
     Dates: start: 20211217, end: 20211217
  8. RAMOSETRON HYDROCHLORIDE [Concomitant]
     Active Substance: RAMOSETRON HYDROCHLORIDE
     Indication: Nausea
     Route: 042
     Dates: start: 20211217, end: 20211223
  9. NOXAFIL [Concomitant]
     Active Substance: POSACONAZOLE
     Indication: Antifungal treatment
     Route: 048
     Dates: start: 20211217
  10. MAXIPIME [Concomitant]
     Active Substance: CEFEPIME HYDROCHLORIDE
     Indication: Antibiotic therapy
     Route: 042
     Dates: start: 20211217, end: 20211219
  11. PLAVITOR [Concomitant]
     Indication: Aortic stenosis
     Route: 048
     Dates: start: 20211217, end: 20211228
  12. CRESTOR [Concomitant]
     Active Substance: ROSUVASTATIN CALCIUM
     Indication: Aortic stenosis
     Route: 048
     Dates: start: 20211217
  13. NICORANDIL [Concomitant]
     Active Substance: NICORANDIL
     Indication: Aortic stenosis
     Route: 048
     Dates: start: 20211217
  14. CANDEMORE [Concomitant]
     Indication: Hypertension
     Route: 048
     Dates: start: 20211217, end: 20211221
  15. CANDEMORE [Concomitant]
     Route: 048
     Dates: start: 20211222
  16. BISOPROLOL FUMARATE [Concomitant]
     Active Substance: BISOPROLOL FUMARATE
     Indication: Cardiac failure
     Route: 048
     Dates: start: 20211217
  17. PENIRAMIN [Concomitant]
     Indication: Transfusion
     Dosage: PRN
     Route: 042
     Dates: start: 20211217
  18. PENIRAMIN [Concomitant]
     Indication: Prophylaxis
  19. ACLOVA [Concomitant]
     Indication: Antiviral treatment
     Route: 042
     Dates: start: 20211218, end: 20211219
  20. ACLOVA [Concomitant]
     Indication: Prophylaxis
  21. MEROPENEM [Concomitant]
     Active Substance: MEROPENEM
     Indication: Antibiotic therapy
     Route: 042
     Dates: start: 20211219
  22. MEROPENEM [Concomitant]
     Active Substance: MEROPENEM
     Indication: Prophylaxis
  23. IPRATROPIUM BROMIDE [Concomitant]
     Active Substance: IPRATROPIUM BROMIDE
     Indication: Emphysema
     Route: 055
     Dates: start: 20211221
  24. ACETYLCYSTEINE [Concomitant]
     Active Substance: ACETYLCYSTEINE
     Indication: Emphysema
     Route: 042
     Dates: start: 20211222
  25. DONG A PERDIPINE [Concomitant]
     Indication: Hypertension
     Route: 042
     Dates: start: 20211221, end: 20211221
  26. DONG A PERDIPINE [Concomitant]
     Route: 042
     Dates: start: 20211222, end: 20211222
  27. DONG A PERDIPINE [Concomitant]
     Route: 042
     Dates: start: 20211224, end: 20211224
  28. VANCOCIN CP [Concomitant]
     Indication: Antibiotic therapy
     Dosage: Q24H OVER 1HR
     Route: 042
     Dates: start: 20211224
  29. VITAMINS [Concomitant]
     Active Substance: VITAMINS
     Indication: Nutritional supplementation
     Route: 042
     Dates: start: 20211228
  30. LINEZOLID [Concomitant]
     Active Substance: LINEZOLID
     Indication: Antibiotic therapy
     Dosage: ZYVOX INJECTION 600MILLIGRAMS/300MILLITERS/PA
     Route: 042
     Dates: start: 20220105, end: 20220105
  31. NORPIN [Concomitant]
     Indication: Hypotension
     Dosage: INJ 4 MILLILITERS
     Route: 042
     Dates: start: 20220105, end: 20220105

REACTIONS (2)
  - Septic shock [Fatal]
  - Pleural effusion [Not Recovered/Not Resolved]

NARRATIVE: CASE EVENT DATE: 20211224
